FAERS Safety Report 14173777 (Version 1)
Quarter: 2017Q4

REPORT INFORMATION
  Report Type: Report from Study
  Country: CO (occurrence: CO)
  Receive Date: 20171109
  Receipt Date: 20171109
  Transmission Date: 20180321
  Serious: Yes (Other)
  Sender: FDA-Public Use
  Company Number: PHHY2017CO162345

PATIENT
  Age: 34 Year
  Sex: Female

DRUGS (1)
  1. TASIGNA [Suspect]
     Active Substance: NILOTINIB
     Indication: CHRONIC MYELOID LEUKAEMIA
     Dosage: 200 MG, BID
     Route: 048
     Dates: start: 20170924

REACTIONS (2)
  - Electrocardiogram ST segment elevation [Unknown]
  - Electrocardiogram change [Unknown]

NARRATIVE: CASE EVENT DATE: 20171030
